FAERS Safety Report 17379481 (Version 1)
Quarter: 2020Q1

REPORT INFORMATION
  Report Type: Spontaneous
  Country: US (occurrence: US)
  Receive Date: 20200206
  Receipt Date: 20200206
  Transmission Date: 20200409
  Serious: No
  Sender: FDA-Public Use
  Company Number: US-ABBVIE-19K-163-2662763-00

PATIENT

DRUGS (6)
  1. HUMIRA [Suspect]
     Active Substance: ADALIMUMAB
     Indication: PSORIASIS
     Route: 058
     Dates: start: 2015, end: 201504
  2. COSENTYX [Suspect]
     Active Substance: SECUKINUMAB
     Indication: PRODUCT USED FOR UNKNOWN INDICATION
     Route: 065
     Dates: start: 201612, end: 201804
  3. STALANEV [Suspect]
     Active Substance: LAMIVUDINE\NEVIRAPINE\STAVUDINE
     Indication: PRODUCT USED FOR UNKNOWN INDICATION
     Route: 065
     Dates: start: 201512, end: 201810
  4. METHOTREXATE. [Suspect]
     Active Substance: METHOTREXATE
     Indication: PRODUCT USED FOR UNKNOWN INDICATION
     Route: 048
     Dates: start: 201602
  5. ORENCIA [Suspect]
     Active Substance: ABATACEPT
     Indication: PRODUCT USED FOR UNKNOWN INDICATION
     Route: 065
     Dates: start: 201505, end: 201511
  6. METHOTREXATE. [Suspect]
     Active Substance: METHOTREXATE
     Route: 065
     Dates: start: 2014, end: 2015

REACTIONS (3)
  - Drug ineffective [Unknown]
  - Rash [Unknown]
  - Swelling [Unknown]

NARRATIVE: CASE EVENT DATE: 2015
